FAERS Safety Report 17652464 (Version 2)
Quarter: 2020Q2

REPORT INFORMATION
  Report Type: Spontaneous
  Country: IT (occurrence: IT)
  Receive Date: 20200409
  Receipt Date: 20200430
  Transmission Date: 20200713
  Serious: Yes (Other)
  Sender: FDA-Public Use
  Company Number: IT-PFIZER INC-2020143265

PATIENT
  Sex: Female

DRUGS (2)
  1. IRINOTECAN HCL [Suspect]
     Active Substance: IRINOTECAN HYDROCHLORIDE
     Indication: NEUROBLASTOMA
     Dosage: 50 MG/M2, EVERY 3 WEEKS (5-DAY COURSE OF CHEMOTHERAPY EVERY 3 WEEKS)
     Dates: start: 201606
  2. TEMOZOLOMIDE. [Suspect]
     Active Substance: TEMOZOLOMIDE
     Indication: NEUROBLASTOMA
     Dosage: 100 MG/M2, EVERY 3 WEEKS (100 MILLIGRAM/SQ. METER, 5-DAY COURSE OF CHEMOTHERAPY EVERY 3 WEEKS)
     Route: 048
     Dates: start: 201607, end: 201812

REACTIONS (5)
  - Off label use [Unknown]
  - Immunodeficiency [Unknown]
  - Product use in unapproved indication [Unknown]
  - Blood product transfusion dependent [Unknown]
  - Bone marrow toxicity [Unknown]
